FAERS Safety Report 8269703-5 (Version None)
Quarter: 2012Q2

REPORT INFORMATION
  Report Type: 
  Country: None (occurrence: None)
  Receive Date: 20120406
  Receipt Date: 20120322
  Transmission Date: 20120825
  Serious: Yes (Death, Life-Threatening, Disabling)
  Sender: FDA-Public Use
  Company Number: A0970834A

PATIENT
  Age: 60 Year
  Sex: Male

DRUGS (2)
  1. CARDIOVASCULAR MEDICATION [Concomitant]
  2. DIGOXIN [Suspect]
     Indication: MYOCARDIAL INFARCTION
     Dosage: .25 MG / PER DAY / ORAL
     Route: 048

REACTIONS (1)
  - TINNITUS [None]
